FAERS Safety Report 8347105-0 (Version None)
Quarter: 2012Q2

REPORT INFORMATION
  Report Type: 
  Country: None (occurrence: None)
  Receive Date: 20120509
  Receipt Date: 20120427
  Transmission Date: 20120825
  Serious: Yes (Hospitalization)
  Sender: FDA-Public Use
  Company Number: JP-JNJFOC-20120112263

PATIENT
  Sex: Male
  Weight: 40 kg

DRUGS (7)
  1. RISPERDAL [Suspect]
     Indication: SCHIZOPHRENIA
     Route: 048
     Dates: start: 20070119, end: 20120103
  2. MAGNESIUM OXIDE [Concomitant]
     Indication: CONSTIPATION
     Route: 048
     Dates: end: 20120102
  3. BROTIZOLAM [Concomitant]
     Indication: INSOMNIA
     Route: 048
     Dates: end: 20120102
  4. FLUNITRAZEPAM [Concomitant]
     Indication: INSOMNIA
     Route: 048
     Dates: end: 20120102
  5. SEROQUEL [Suspect]
     Indication: SCHIZOPHRENIA
     Route: 048
     Dates: start: 20110327, end: 20120102
  6. DEPAS [Concomitant]
     Indication: SCHIZOPHRENIA
     Route: 048
     Dates: end: 20120102
  7. TEGRETOL [Suspect]
     Indication: SCHIZOPHRENIA
     Route: 048
     Dates: start: 20100222, end: 20120102

REACTIONS (3)
  - PNEUMONIA [None]
  - LIVER DISORDER [None]
  - CHOLELITHIASIS [None]
